FAERS Safety Report 21623879 (Version 1)
Quarter: 2022Q4

REPORT INFORMATION
  Report Type: Spontaneous
  Country: US (occurrence: US)
  Receive Date: 20221121
  Receipt Date: 20221121
  Transmission Date: 20230113
  Serious: Yes (Hospitalization)
  Sender: FDA-Public Use
  Company Number: US-KARYOPHARM THERAPEUTICS, INC.-2022KPT001408

PATIENT

DRUGS (8)
  1. XPOVIO [Suspect]
     Active Substance: SELINEXOR
     Indication: Plasma cell myeloma
     Dosage: 60 MG, WEEKLY ON DAYS 1, 8, 15 OF A 28-DAY CYCLE
     Route: 048
     Dates: end: 2022
  2. ACYCLOVIR [Concomitant]
     Active Substance: ACYCLOVIR
  3. ALLOPURINOL [Concomitant]
     Active Substance: ALLOPURINOL
  4. AZITHROMYCIN [Concomitant]
     Active Substance: AZITHROMYCIN
  5. NYSTATIN [Concomitant]
     Active Substance: NYSTATIN
  6. OLANZAPINE [Concomitant]
     Active Substance: OLANZAPINE
  7. PROCHLORPERAZINE [Concomitant]
     Active Substance: PROCHLORPERAZINE
  8. XARELTO [Concomitant]
     Active Substance: RIVAROXABAN

REACTIONS (2)
  - Pneumonia [Unknown]
  - Sepsis [Unknown]

NARRATIVE: CASE EVENT DATE: 20221111
